FAERS Safety Report 11458695 (Version 3)
Quarter: 2015Q4

REPORT INFORMATION
  Report Type: Spontaneous
  Country: DE (occurrence: DE)
  Receive Date: 20150904
  Receipt Date: 20151027
  Transmission Date: 20160304
  Serious: Yes (Death, Hospitalization, Other)
  Sender: FDA-Public Use
  Company Number: DE-JNJFOC-20150723125

PATIENT
  Age: 66 Year
  Sex: Female
  Weight: 42 kg

DRUGS (1)
  1. XARELTO [Suspect]
     Active Substance: RIVAROXABAN
     Indication: PULMONARY EMBOLISM
     Route: 048
     Dates: start: 20141209

REACTIONS (6)
  - Back pain [Recovered/Resolved with Sequelae]
  - Urinary tract infection [Recovered/Resolved]
  - Gastric ulcer helicobacter [Recovered/Resolved]
  - Urinary retention [Recovered/Resolved]
  - Gastric ulcer [Not Recovered/Not Resolved]
  - Gastric cancer [Fatal]

NARRATIVE: CASE EVENT DATE: 20150304
